FAERS Safety Report 4839559-9 (Version None)
Quarter: 2005Q4

REPORT INFORMATION
  Report Type: 
  Country: None (occurrence: None)
  Receive Date: 20051128
  Receipt Date: 20051128
  Transmission Date: 20060501
  Serious: No
  Sender: FDA-Public Use
  Company Number: None

PATIENT
  Age: 5 Year
  Sex: Male

DRUGS (2)
  1. ZYRTEC [Suspect]
     Indication: ASTHMA
     Dosage: 1 TABLET    DAILY    PO    (DIDN'T USE - WAS EXPIRED)
     Route: 048
     Dates: start: 20051123, end: 20051123
  2. ZYRTEC [Suspect]
     Indication: HYPERSENSITIVITY
     Dosage: 1 TABLET    DAILY    PO    (DIDN'T USE - WAS EXPIRED)
     Route: 048
     Dates: start: 20051123, end: 20051123

REACTIONS (2)
  - DRUG DISPENSING ERROR [None]
  - INTERCEPTED MEDICATION ERROR [None]
